FAERS Safety Report 16977695 (Version 1)
Quarter: 2019Q4

REPORT INFORMATION
  Report Type: Spontaneous
  Country: US (occurrence: US)
  Receive Date: 20191031
  Receipt Date: 20191031
  Transmission Date: 20200122
  Serious: No
  Sender: FDA-Public Use
  Company Number: US-TEVA-2019-US-1131018

PATIENT
  Age: 24 Year

DRUGS (1)
  1. ENOXAPARIN SODIUM. [Suspect]
     Active Substance: ENOXAPARIN SODIUM
     Dosage: FORM STRENGTH: 40 MG / 0.4 ML
     Route: 065

REACTIONS (2)
  - Contusion [Unknown]
  - Needle issue [Unknown]

NARRATIVE: CASE EVENT DATE: 20191025
